FAERS Safety Report 5978595-6 (Version None)
Quarter: 2008Q4

REPORT INFORMATION
  Report Type: 
  Country: None (occurrence: None)
  Receive Date: 20081204
  Receipt Date: 20081126
  Transmission Date: 20090506
  Serious: Yes (Hospitalization)
  Sender: FDA-Public Use
  Company Number: B0547935A

PATIENT
  Age: 64 Year
  Sex: Male

DRUGS (9)
  1. ZOVIRAX [Suspect]
     Indication: ENCEPHALITIS HERPES
     Dosage: 700MG THREE TIMES PER DAY
     Route: 042
     Dates: start: 20081003, end: 20081006
  2. ROCEPHIN [Suspect]
     Indication: DRUG USE FOR UNKNOWN INDICATION
     Dosage: 2G PER DAY
     Route: 042
     Dates: start: 20081003, end: 20081003
  3. AMLOD [Concomitant]
     Dosage: 10MG PER DAY
     Route: 065
     Dates: end: 20081006
  4. PLAVIX [Concomitant]
     Route: 065
     Dates: end: 20081006
  5. DI ACTANE 200 [Concomitant]
     Dosage: 200MG TWICE PER DAY
     Route: 065
     Dates: end: 20081006
  6. PRITOR [Concomitant]
     Dosage: 40MG PER DAY
     Route: 065
     Dates: end: 20081006
  7. LIPANTHYL [Concomitant]
     Route: 065
     Dates: end: 20081006
  8. TEMESTA [Concomitant]
     Dosage: 2.5MG PER DAY
     Route: 065
     Dates: end: 20081003
  9. NORMISON [Concomitant]
     Dosage: 10MG PER DAY
     Route: 065
     Dates: end: 20081003

REACTIONS (2)
  - AGITATION [None]
  - RENAL FAILURE ACUTE [None]
